FAERS Safety Report 7237332-8 (Version None)
Quarter: 2011Q1

REPORT INFORMATION
  Report Type: 
  Country: None (occurrence: None)
  Receive Date: 20110121
  Receipt Date: 20110113
  Transmission Date: 20110831
  Serious: Yes (Other)
  Sender: FDA-Public Use
  Company Number: US-ASTRAZENECA-2007UW16277

PATIENT
  Age: 13813 Day
  Sex: Male
  Weight: 99.8 kg

DRUGS (24)
  1. BACLOFEN [Concomitant]
     Indication: MUSCLE SPASMS
     Dosage: 40-80 MG
     Route: 048
  2. LIPITOR [Concomitant]
     Indication: DYSLIPIDAEMIA
     Route: 048
     Dates: start: 20050811
  3. VYTORIN [Concomitant]
     Indication: HYPERLIPIDAEMIA
     Dosage: 10/40
     Dates: start: 20060101
  4. DEPAKOTE [Concomitant]
     Dosage: 1000- 1500 MG
     Route: 048
  5. ZOMIG [Concomitant]
     Route: 048
  6. ELAVIL [Concomitant]
     Route: 065
  7. MS CONTIN [Concomitant]
     Indication: HEADACHE
     Route: 065
  8. SEROQUEL [Suspect]
     Route: 048
     Dates: start: 20010901
  9. SEROQUEL [Suspect]
     Route: 048
     Dates: start: 20040101
  10. MEDROL [Concomitant]
     Route: 048
  11. SEROQUEL [Suspect]
     Indication: MIGRAINE
     Dosage: 100-200 MG
     Route: 048
     Dates: start: 20010926
  12. IMITREX [Concomitant]
     Dosage: 100-200 MG
     Route: 065
  13. ANAPROX DS [Concomitant]
     Route: 065
  14. FLEXERIL [Concomitant]
     Indication: MUSCLE SPASMS
     Route: 048
  15. ZONEGRAN [Concomitant]
     Dosage: 100-200 MG
     Route: 065
  16. ZANAFLEX [Concomitant]
     Dosage: 100-300 MG
     Route: 065
  17. LISINOPRIL [Concomitant]
     Indication: HYPERTENSION
     Dosage: 2.5-5 MG
     Route: 065
  18. METFORMIN [Concomitant]
     Dosage: 500-850 MG
     Route: 048
  19. AMERGE [Concomitant]
     Route: 048
  20. MIGRANAL [Concomitant]
     Route: 045
  21. VICODIN [Concomitant]
     Route: 065
  22. REGLAN [Concomitant]
     Route: 065
  23. PHENERGAN [Concomitant]
     Route: 048
  24. SKELAXIN [Concomitant]
     Route: 048

REACTIONS (18)
  - PAIN IN EXTREMITY [None]
  - CARDIOMYOPATHY [None]
  - CYST [None]
  - HEART INJURY [None]
  - ARTHRALGIA [None]
  - JOINT SWELLING [None]
  - LUMBAR RADICULOPATHY [None]
  - CHEST PAIN [None]
  - SYNCOPE [None]
  - TYPE 2 DIABETES MELLITUS [None]
  - BACK PAIN [None]
  - VENTRICULAR TACHYCARDIA [None]
  - HAEMATURIA [None]
  - NEPHROLITHIASIS [None]
  - DYSLIPIDAEMIA [None]
  - HYPERLIPIDAEMIA [None]
  - HYPERTENSION [None]
  - ABSCESS [None]
